FAERS Safety Report 12341431 (Version 2)
Quarter: 2016Q2

REPORT INFORMATION
  Report Type: Spontaneous
  Country: US (occurrence: US)
  Receive Date: 20160506
  Receipt Date: 20160606
  Transmission Date: 20160815
  Serious: Yes (Death, Hospitalization, Other)
  Sender: FDA-Public Use
  Company Number: US-PFIZER INC-2016241993

PATIENT
  Age: 61 Year
  Sex: Male
  Weight: 108.86 kg

DRUGS (8)
  1. REVATIO [Suspect]
     Active Substance: SILDENAFIL CITRATE
     Indication: LUNG DISORDER
  2. LYRICA [Concomitant]
     Active Substance: PREGABALIN
     Indication: PRURITUS
  3. REVATIO [Suspect]
     Active Substance: SILDENAFIL CITRATE
     Indication: DYSPNOEA
  4. METOPROLOL TARTRATE. [Concomitant]
     Active Substance: METOPROLOL TARTRATE
     Indication: DIABETES MELLITUS
     Dosage: 50 MG, 2X/DAY
     Route: 048
     Dates: start: 2015
  5. LYRICA [Concomitant]
     Active Substance: PREGABALIN
     Indication: NERVE INJURY
  6. COUMADIN [Concomitant]
     Active Substance: WARFARIN SODIUM
     Indication: THROMBOSIS
     Dosage: UNKNOWN DOSE
     Route: 048
  7. REVATIO [Suspect]
     Active Substance: SILDENAFIL CITRATE
     Indication: DYSPNOEA EXERTIONAL
     Dosage: 20 MG TABLET, 2X/DAY
     Route: 048
  8. LYRICA [Concomitant]
     Active Substance: PREGABALIN
     Indication: POOR PERIPHERAL CIRCULATION
     Dosage: 100 MG, 1X/DAY AT BEDTIME
     Route: 048
     Dates: start: 201601

REACTIONS (5)
  - Fluid retention [Recovering/Resolving]
  - Death [Fatal]
  - Peripheral swelling [Recovering/Resolving]
  - Pain [Unknown]
  - Abdominal distension [Recovering/Resolving]

NARRATIVE: CASE EVENT DATE: 201604
